FAERS Safety Report 23633475 (Version 1)
Quarter: 2024Q1

REPORT INFORMATION
  Report Type: Spontaneous
  Country: GB (occurrence: GB)
  Receive Date: 20240314
  Receipt Date: 20240314
  Transmission Date: 20240410
  Serious: Yes (Other)
  Sender: FDA-Public Use
  Company Number: None

PATIENT
  Age: 93 Year
  Sex: Female
  Weight: 70 kg

DRUGS (16)
  1. INDAPAMIDE [Suspect]
     Active Substance: INDAPAMIDE
     Indication: Product used for unknown indication
     Dosage: IN THE MORNI...,
     Route: 065
     Dates: start: 20240130
  2. ZOPICLONE [Concomitant]
     Active Substance: ZOPICLONE
     Dosage: AT NIGHT IF REALLY NECESSARY,
     Dates: start: 20230606
  3. CITALOPRAM [Concomitant]
     Active Substance: CITALOPRAM HYDROBROMIDE
     Dates: start: 20230606
  4. LEVOTHYROXINE [Concomitant]
     Active Substance: LEVOTHYROXINE\LEVOTHYROXINE SODIUM
     Dates: start: 20230606
  5. HYDROXOCOBALAMIN [Concomitant]
     Active Substance: HYDROXOCOBALAMIN
     Dates: start: 20240130
  6. FERROUS FUMARATE [Concomitant]
     Active Substance: FERROUS FUMARATE
     Dates: start: 20230606
  7. RISEDRONATE SODIUM [Concomitant]
     Active Substance: RISEDRONATE SODIUM
     Dates: start: 20230606
  8. ACETAMINOPHEN [Concomitant]
     Active Substance: ACETAMINOPHEN
     Dosage: TAKE 1 OR 2 UP TO FOUR  TIMES/DAY WHEN NEEDED
     Dates: start: 20230606
  9. OMEPRAZOLE [Concomitant]
     Active Substance: OMEPRAZOLE
     Dosage: AT BREAKFAST,
     Dates: start: 20230606
  10. PHORPAIN [Concomitant]
     Dates: start: 20231211, end: 20240108
  11. FLUPENTIXOL [Concomitant]
     Active Substance: FLUPENTIXOL
     Dates: start: 20230606
  12. FENBID [Concomitant]
     Dosage: TO BE APPLIED TO THE AFFECTED AREA(S) UP TO THR,
     Dates: start: 20231220, end: 20240117
  13. SIMVASTATIN [Concomitant]
     Active Substance: SIMVASTATIN
     Indication: Blood cholesterol increased
     Dosage: AT NIGHT,
     Dates: start: 20230606
  14. FUROSEMIDE [Concomitant]
     Active Substance: FUROSEMIDE
     Indication: Fluid retention
     Dosage: IN THE MORNING TO REMOVE EXCESS FLUID,
     Dates: start: 20240227
  15. FELODIPINE [Concomitant]
     Active Substance: FELODIPINE
     Indication: Hypertension
     Dosage: MORNINGSIDE HEALTHCARE,  PROLONGED-RELEASE,
     Dates: start: 20240227
  16. RAMIPRIL [Concomitant]
     Active Substance: RAMIPRIL
     Dosage: TO REDUCE B,
     Dates: start: 20230606

REACTIONS (1)
  - Arthralgia [Recovered/Resolved]

NARRATIVE: CASE EVENT DATE: 20240229
